FAERS Safety Report 6399616-5 (Version None)
Quarter: 2009Q4

REPORT INFORMATION
  Report Type: 
  Country: None (occurrence: None)
  Receive Date: 20091014
  Receipt Date: 20091005
  Transmission Date: 20100525
  Serious: Yes (Other)
  Sender: FDA-Public Use
  Company Number: US-ASTRAZENECA-2009SE12352

PATIENT
  Age: 50 Year
  Sex: Female
  Weight: 57.2 kg

DRUGS (2)
  1. CRESTOR [Suspect]
     Indication: BLOOD CHOLESTEROL INCREASED
     Route: 048
     Dates: start: 20040109, end: 20090809
  2. CRESTOR [Suspect]
     Route: 048
     Dates: start: 20090101, end: 20090809

REACTIONS (2)
  - CONTUSION [None]
  - THROMBOSIS [None]
